FAERS Safety Report 25741103 (Version 1)
Quarter: 2025Q3

REPORT INFORMATION
  Report Type: Spontaneous
  Country: US (occurrence: US)
  Receive Date: 20250829
  Receipt Date: 20250829
  Transmission Date: 20251021
  Serious: No
  Sender: VERTEX
  Company Number: US-VERTEX PHARMACEUTICALS-2025-012006

PATIENT
  Sex: Female

DRUGS (4)
  1. ALYFTREK [Suspect]
     Active Substance: DEUTIVACAFTOR\TEZACAFTOR\VANZACAFTOR
     Indication: Cystic fibrosis
     Dosage: ONE-HALF TABLET (10MG VANZACAFTOR/50 MG TEZACAFTOR/125 MG DEUTIVACAFTOR), 1 TIME A DAY
     Route: 048
     Dates: start: 202504, end: 20250717
  2. CAYSTON [Concomitant]
     Active Substance: AZTREONAM
     Dosage: 28 DAYS ON AND 28 DAYS OFF, THREE TIMES A DAY
  3. PULMOZYME [Concomitant]
     Active Substance: DORNASE ALFA
  4. DUPIXENT [Concomitant]
     Active Substance: DUPILUMAB
     Indication: Asthma
     Route: 058
     Dates: start: 202410

REACTIONS (1)
  - Liver function test increased [Unknown]

NARRATIVE: CASE EVENT DATE: 20250101
